FAERS Safety Report 11075146 (Version 1)
Quarter: 2015Q2

REPORT INFORMATION
  Report Type: Spontaneous
  Country: US (occurrence: None)
  Receive Date: 20150428
  Receipt Date: 20150428
  Transmission Date: 20150821
  Serious: Yes (Life-Threatening, Other)
  Sender: FDA-Public Use
  Company Number: None

PATIENT
  Age: 38 Year
  Sex: Female

DRUGS (5)
  1. WELLBUTRIN [Suspect]
     Active Substance: BUPROPION HYDROCHLORIDE
     Indication: DEPRESSION
     Dosage: 1, TWICE DAILY, TAKEN BY MOUTH
     Route: 048
     Dates: start: 20120312, end: 20140810
  2. MOTRIN [Concomitant]
     Active Substance: IBUPROFEN
  3. VIIBRYD [Concomitant]
     Active Substance: VILAZODONE HYDROCHLORIDE
  4. XANAX [Concomitant]
     Active Substance: ALPRAZOLAM
  5. LISINOPRIL. [Concomitant]
     Active Substance: LISINOPRIL

REACTIONS (5)
  - Head injury [None]
  - Concussion [None]
  - Activities of daily living impaired [None]
  - Impaired driving ability [None]
  - Seizure [None]

NARRATIVE: CASE EVENT DATE: 20140803
